FAERS Safety Report 25705666 (Version 1)
Quarter: 2025Q3

REPORT INFORMATION
  Report Type: Spontaneous
  Country: US (occurrence: US)
  Receive Date: 20250820
  Receipt Date: 20250820
  Transmission Date: 20251021
  Serious: No
  Sender: BAYER HEALTHCARE PHARMACEUTICALS INC.
  Company Number: US-BAYER-2025A107410

PATIENT
  Age: 58 Year
  Sex: Female

DRUGS (7)
  1. KERENDIA [Suspect]
     Active Substance: FINERENONE
     Indication: Chronic kidney disease
     Dates: start: 20250304, end: 20250701
  2. LINZESS [Concomitant]
     Active Substance: LINACLOTIDE
  3. LISINOPRIL [Concomitant]
     Active Substance: LISINOPRIL
  4. OZEMPIC [Concomitant]
     Active Substance: SEMAGLUTIDE
  5. ACETAMINOPHEN\HYDROCODONE [Concomitant]
     Active Substance: ACETAMINOPHEN\HYDROCODONE
  6. CYMBALTA [Concomitant]
     Active Substance: DULOXETINE HYDROCHLORIDE
  7. CYCLOBENZAPRINE [Concomitant]
     Active Substance: CYCLOBENZAPRINE

REACTIONS (2)
  - Renal pain [None]
  - Product availability issue [None]

NARRATIVE: CASE EVENT DATE: 20250312
